FAERS Safety Report 4908812-2 (Version None)
Quarter: 2006Q1

REPORT INFORMATION
  Report Type: 
  Country: None (occurrence: None)
  Receive Date: 20060210
  Receipt Date: 20051129
  Transmission Date: 20060701
  Serious: No
  Sender: FDA-Public Use
  Company Number: US-GLAXOSMITHKLINE-A0583875A

PATIENT
  Age: 67 Year
  Sex: Female

DRUGS (13)
  1. PAXIL CR [Suspect]
     Indication: DEPRESSION
     Dosage: 1TAB PER DAY
     Route: 048
  2. GLUCOPHAGE [Concomitant]
  3. CLONAZEPAM [Concomitant]
  4. ACTOS [Concomitant]
  5. LORATADINE [Concomitant]
  6. ASTELIN [Concomitant]
  7. ACETAMINOPHEN AND HYDROCODONE BITARTRATE [Concomitant]
  8. PREMARIN [Concomitant]
  9. RANITIDINE HCL [Concomitant]
  10. CAPTOPRIL [Concomitant]
  11. HYDROCHLOROTHIAZIDE [Concomitant]
  12. CELEBREX [Concomitant]
  13. LOPROX [Concomitant]

REACTIONS (1)
  - DEPRESSION [None]
